FAERS Safety Report 11512625 (Version 2)
Quarter: 2015Q4

REPORT INFORMATION
  Report Type: Spontaneous
  Country: ES (occurrence: ES)
  Receive Date: 20150916
  Receipt Date: 20151016
  Transmission Date: 20160304
  Serious: Yes (Hospitalization)
  Sender: FDA-Public Use
  Company Number: ES-ASTRAZENECA-2015SE88119

PATIENT
  Age: 734 Month
  Sex: Female
  Weight: 65 kg

DRUGS (7)
  1. REPAGLINIDE. [Concomitant]
     Active Substance: REPAGLINIDE
     Indication: DIABETES MELLITUS
     Route: 048
     Dates: start: 20121114
  2. VALSARTAN. [Concomitant]
     Active Substance: VALSARTAN
     Indication: HYPERTENSION
     Route: 048
     Dates: start: 20130109
  3. LYRICA [Concomitant]
     Active Substance: PREGABALIN
     Indication: SCIATICA
     Route: 048
     Dates: start: 20140212
  4. SIMVASTATIN. [Concomitant]
     Active Substance: SIMVASTATIN
     Indication: DYSLIPIDAEMIA
     Route: 048
     Dates: start: 20121207
  5. BESITRAN [Concomitant]
     Active Substance: SERTRALINE HYDROCHLORIDE
     Indication: DEPRESSION
     Dosage: 100 MG/24H,100 MG DAILY
     Route: 048
     Dates: start: 20121207
  6. METFORMIN [Concomitant]
     Active Substance: METFORMIN HYDROCHLORIDE
  7. XIGDUO XR [Suspect]
     Active Substance: DAPAGLIFLOZIN PROPANEDIOL\METFORMIN HYDROCHLORIDE
     Indication: TYPE 2 DIABETES MELLITUS
     Dosage: 5MG/1000/12H BID
     Route: 048
     Dates: start: 20150519, end: 20150805

REACTIONS (7)
  - Diarrhoea [Unknown]
  - Drug ineffective [Unknown]
  - Dehydration [Unknown]
  - Gastroenteritis [Unknown]
  - Prerenal failure [Recovered/Resolved]
  - Glycosylated haemoglobin increased [Unknown]
  - Urinary tract infection [Recovered/Resolved]

NARRATIVE: CASE EVENT DATE: 201507
